FAERS Safety Report 4639249-1 (Version None)
Quarter: 2005Q2

REPORT INFORMATION
  Report Type: 
  Country: None (occurrence: None)
  Receive Date: 20050419
  Receipt Date: 20041029
  Transmission Date: 20051028
  Serious: Yes (Death)
  Sender: FDA-Public Use
  Company Number: US-SANOFI-SYNTHELABO-D01200404475

PATIENT
  Sex: Female
  Weight: 57.3 kg

DRUGS (19)
  1. RASBURICASE [Suspect]
     Indication: HYPERURICAEMIA
     Route: 042
     Dates: start: 20040921, end: 20040923
  2. ALLOPURINOL [Suspect]
     Route: 048
     Dates: start: 20040923, end: 20040925
  3. VANCOMYCIN [Concomitant]
     Dosage: UNK
     Route: 065
     Dates: start: 20040927, end: 20041018
  4. FORTAZ [Concomitant]
     Dosage: UNK
     Route: 065
     Dates: start: 20040926, end: 20040927
  5. NAFCILLIN SODIUM [Concomitant]
     Dosage: UNK
     Route: 065
     Dates: start: 20040929, end: 20041003
  6. ACYCLOVIR [Concomitant]
     Dosage: UNK
     Route: 065
     Dates: start: 20040920
  7. SPORANOX [Concomitant]
     Dosage: UNK
     Route: 065
     Dates: start: 20040920, end: 20041001
  8. CIPROFLOXACIN [Concomitant]
     Dosage: UNK
     Route: 065
     Dates: start: 20040920, end: 20041019
  9. G-CSF [Concomitant]
     Dosage: UNK
     Route: 065
     Dates: start: 20040929, end: 20041011
  10. PRIMAXIN [Concomitant]
     Dosage: UNK
     Route: 065
     Dates: start: 20040930
  11. CANCIDAS [Concomitant]
     Dosage: UNK
     Route: 065
     Dates: start: 20041002, end: 20041007
  12. KYTRIL [Concomitant]
     Dosage: UNK
     Route: 065
     Dates: start: 20040921, end: 20040927
  13. COLACE [Concomitant]
     Dosage: UNK
     Route: 065
     Dates: start: 20040920, end: 20041003
  14. HALDOL [Concomitant]
     Dosage: UNK
     Route: 065
     Dates: start: 20040923, end: 20041003
  15. ATIVAN [Concomitant]
     Dosage: UNK
     Route: 065
     Dates: start: 20040923, end: 20041003
  16. REGLAN [Concomitant]
     Dosage: UNK
     Route: 065
     Dates: start: 20041002, end: 20041003
  17. BENADRYL [Concomitant]
     Dosage: UNK
     Route: 065
     Dates: start: 20040924, end: 20040924
  18. BENADRYL [Concomitant]
     Dosage: UNK
     Route: 065
     Dates: start: 20041002, end: 20041003
  19. TYLENOL (CAPLET) [Concomitant]
     Dosage: UNK
     Route: 065
     Dates: start: 20040924, end: 20040924

REACTIONS (11)
  - CARDIAC ARREST [None]
  - GALLBLADDER DISORDER [None]
  - GASTROINTESTINAL HAEMORRHAGE [None]
  - HAEMATURIA [None]
  - HEPATIC FAILURE [None]
  - HEPATITIS B [None]
  - HEPATOTOXICITY [None]
  - PLATELET COUNT DECREASED [None]
  - PULMONARY HAEMORRHAGE [None]
  - RENAL FAILURE [None]
  - SEPSIS [None]
